FAERS Safety Report 6441054-0 (Version None)
Quarter: 2009Q4

REPORT INFORMATION
  Report Type: 
  Country: None (occurrence: None)
  Receive Date: 20091102
  Receipt Date: 20071008
  Transmission Date: 20100525
  Serious: Yes (Other)
  Sender: FDA-Public Use
  Company Number: CART-10495

PATIENT
  Age: 29 Year
  Sex: Female
  Weight: 76.4 kg

DRUGS (2)
  1. CARTICEL [Suspect]
     Indication: ARTHROPATHY
     Dosage: 1 NA, ONCE, OTHER
     Route: 050
     Dates: start: 20021126, end: 20021126
  2. CARTICEL [Suspect]
     Indication: ARTHROPATHY
     Dosage: 1 NA, ONCE, OTHER
     Route: 050
     Dates: start: 20031209, end: 20031209

REACTIONS (5)
  - ARTHROFIBROSIS [None]
  - DEVICE FAILURE [None]
  - GRAFT DELAMINATION [None]
  - GRAFT OVERGROWTH [None]
  - LOOSE BODY IN JOINT [None]
